FAERS Safety Report 19615529 (Version 5)
Quarter: 2022Q3

REPORT INFORMATION
  Report Type: Report from Study
  Country: US (occurrence: US)
  Receive Date: 20210727
  Receipt Date: 20220927
  Transmission Date: 20221027
  Serious: Yes (Hospitalization, Other)
  Sender: FDA-Public Use
  Company Number: US-TAKEDA-2021TUS020945

PATIENT
  Sex: Female

DRUGS (1)
  1. HUMAN IMMUNOGLOBULIN G [Suspect]
     Active Substance: HUMAN IMMUNOGLOBULIN G
     Indication: Immunodeficiency common variable
     Dosage: UNK
     Route: 042

REACTIONS (11)
  - Illness [Unknown]
  - Nephrolithiasis [Unknown]
  - Feeling abnormal [Unknown]
  - Malaise [Unknown]
  - Infusion related reaction [Unknown]
  - Renal pain [Unknown]
  - Back pain [Unknown]
  - Cough [Unknown]
  - Sinusitis [Unknown]
  - Nausea [Unknown]
  - Lung disorder [Unknown]
